FAERS Safety Report 6182686-7 (Version None)
Quarter: 2009Q2

REPORT INFORMATION
  Report Type: 
  Country: None (occurrence: None)
  Receive Date: 20090507
  Receipt Date: 20090424
  Transmission Date: 20091009
  Serious: Yes (Hospitalization)
  Sender: FDA-Public Use
  Company Number: B0483534A

PATIENT
  Sex: Female

DRUGS (3)
  1. LAMICTAL [Suspect]
     Dosage: 200MG PER DAY
     Route: 048
     Dates: start: 20070605, end: 20070711
  2. PROPOFAN [Concomitant]
     Route: 065
  3. ACETAMINOPHEN [Concomitant]
     Route: 065
     Dates: start: 20070615, end: 20070711

REACTIONS (17)
  - CHEILITIS [None]
  - CHILLS [None]
  - CONJUNCTIVITIS [None]
  - DRUG DISPENSING ERROR [None]
  - DRUG NAME CONFUSION [None]
  - ECZEMA [None]
  - FACE OEDEMA [None]
  - HEPATOCELLULAR INJURY [None]
  - LYMPHOCYTIC INFILTRATION [None]
  - LYMPHOCYTOSIS [None]
  - MALAISE [None]
  - PURPURA [None]
  - PYREXIA [None]
  - RASH MACULO-PAPULAR [None]
  - SKIN LESION [None]
  - SKIN OEDEMA [None]
  - TOXIC SKIN ERUPTION [None]
